FAERS Safety Report 13439698 (Version 2)
Quarter: 2017Q2

REPORT INFORMATION
  Report Type: Spontaneous
  Country: US (occurrence: US)
  Receive Date: 20170413
  Receipt Date: 20170605
  Transmission Date: 20170830
  Serious: Yes (Other)
  Sender: FDA-Public Use
  Company Number: US-TEVA-758578ACC

PATIENT
  Age: 23 Year
  Sex: Female
  Weight: 64.01 kg

DRUGS (1)
  1. PARAGARD T 380A [Suspect]
     Active Substance: COPPER
     Indication: CONTRACEPTION
     Dates: start: 20170315, end: 20170405

REACTIONS (5)
  - Neck pain [Recovered/Resolved]
  - Device dislocation [Recovered/Resolved]
  - Pelvic pain [Recovered/Resolved]
  - Back pain [Recovered/Resolved]
  - Arthralgia [Recovered/Resolved]

NARRATIVE: CASE EVENT DATE: 20170329
